FAERS Safety Report 24687524 (Version 1)
Quarter: 2024Q4

REPORT INFORMATION
  Report Type: Spontaneous
  Country: IR (occurrence: IR)
  Receive Date: 20241202
  Receipt Date: 20241202
  Transmission Date: 20250114
  Serious: Yes (Hospitalization, Other)
  Sender: MERCK
  Company Number: IR-009507513-2411IRN011315

PATIENT
  Age: 65 Year
  Sex: Female

DRUGS (2)
  1. PEMBROLIZUMAB [Interacting]
     Active Substance: PEMBROLIZUMAB
     Indication: Metastatic malignant melanoma
     Dosage: 200 MILLIGRAM  (TWO CYCLES)
  2. COVID-19 VACCINE NOS [Interacting]
     Active Substance: COVID-19 VACCINE
     Dosage: 2 DOSES

REACTIONS (2)
  - Immune-mediated myasthenia gravis [Not Recovered/Not Resolved]
  - Drug interaction [Not Recovered/Not Resolved]
